FAERS Safety Report 8589399-2 (Version None)
Quarter: 2012Q3

REPORT INFORMATION
  Report Type: 
  Country: None (occurrence: None)
  Receive Date: 20120813
  Receipt Date: 20120808
  Transmission Date: 20120928
  Serious: Yes (Hospitalization)
  Sender: FDA-Public Use
  Company Number: FR-PFIZER INC-2012192768

PATIENT
  Age: 39 Year
  Sex: Male

DRUGS (6)
  1. ARTANE [Suspect]
     Indication: PSYCHOTIC DISORDER
     Dosage: 5 MG IN THE MORNING AND 5 MG IN THE EVENING
     Route: 048
     Dates: end: 20120607
  2. DEPAMIDE [Suspect]
     Indication: PSYCHOTIC DISORDER
     Dosage: 300 MG IN THE MORNING AND 300 MG IN THE EVENING
     Route: 048
     Dates: end: 20120607
  3. XANAX [Suspect]
     Indication: PSYCHOTIC DISORDER
     Dosage: 0.5 MG IN THE MORNING, 0.5 MG AT LUNCH, 0.5 MG IN THE EVENING, AND 1 MG AT BEDTIME
     Route: 048
     Dates: end: 20120607
  4. CHLORPROMAZINE HCL [Suspect]
     Indication: PSYCHOTIC DISORDER
     Dosage: 25 MG IN THE MORNING, 25 MG AT LUNCH AND 25 MG IN THE EVENING
     Route: 048
     Dates: end: 20120607
  5. NOCTAMID [Suspect]
     Indication: PSYCHOTIC DISORDER
     Dosage: 2 MG IN THE EVENING
     Route: 048
     Dates: end: 20120607
  6. SUBUTEX [Suspect]
     Indication: DRUG DEPENDENCE
     Dosage: 16 MG, 2X/DAY
     Route: 048

REACTIONS (2)
  - CONFUSIONAL STATE [None]
  - HEPATOTOXICITY [None]
